FAERS Safety Report 5415442-5 (Version None)
Quarter: 2007Q3

REPORT INFORMATION
  Report Type: 
  Country: None (occurrence: None)
  Receive Date: 20070813
  Receipt Date: 20070813
  Transmission Date: 20080115
  Serious: Yes (Life-Threatening)
  Sender: FDA-Public Use
  Company Number: None

PATIENT
  Age: 76 Year
  Sex: Male

DRUGS (1)
  1. METHOTREXATE [Suspect]
     Indication: RHEUMATOID ARTHRITIS
     Dosage: 20MG QWEEK PO
     Route: 048
     Dates: start: 20001027, end: 20070621

REACTIONS (1)
  - ADULT T-CELL LYMPHOMA/LEUKAEMIA STAGE IV [None]
